FAERS Safety Report 4395480-4 (Version None)
Quarter: 2004Q3

REPORT INFORMATION
  Report Type: 
  Country: None (occurrence: None)
  Receive Date: 20040707
  Receipt Date: 20040624
  Transmission Date: 20050211
  Serious: Yes (Hospitalization)
  Sender: FDA-Public Use
  Company Number: 04P-087-0263168-00

PATIENT
  Age: 30 Year
  Sex: Male
  Weight: 65 kg

DRUGS (4)
  1. OMNICEF [Suspect]
     Indication: INFECTION
     Dosage: SEE IMAGE
     Route: 048
     Dates: start: 20040424, end: 20040428
  2. OMNICEF [Suspect]
     Indication: INFECTION
     Dosage: SEE IMAGE
     Route: 048
     Dates: start: 20040519, end: 32000523
  3. ULGUT CAPSULE [Concomitant]
  4. VOLTAREN [Concomitant]

REACTIONS (5)
  - DIFFICULTY IN WALKING [None]
  - OEDEMA PERIPHERAL [None]
  - PRURITUS [None]
  - RASH PAPULAR [None]
  - SKIN DESQUAMATION [None]
